FAERS Safety Report 12403386 (Version 2)
Quarter: 2016Q2

REPORT INFORMATION
  Report Type: Spontaneous
  Country: IL (occurrence: IL)
  Receive Date: 20160525
  Receipt Date: 20160630
  Transmission Date: 20160815
  Serious: Yes (Hospitalization)
  Sender: FDA-Public Use
  Company Number: IL-BAXTER-2016BAX026380

PATIENT
  Age: 47 Year
  Sex: Male

DRUGS (6)
  1. OXALIPLATIN MEDAC [Suspect]
     Active Substance: OXALIPLATIN
     Dosage: SECOND INFUSION
     Route: 065
     Dates: start: 20151109, end: 20151109
  2. GLUCOSE 5% IV INFUSION BP [Suspect]
     Active Substance: DEXTROSE
     Indication: MEDICATION DILUTION
     Dosage: FIRST INFUSION
     Route: 065
  3. OXALIPLATIN MEDAC [Suspect]
     Active Substance: OXALIPLATIN
     Indication: ADENOCARCINOMA OF COLON
     Dosage: FIRST INFUSION
     Route: 065
  4. OXALIPLATIN MEDAC [Suspect]
     Active Substance: OXALIPLATIN
     Dosage: CONTINUED OXALIPLATIN TREATMENT -THE SOURCE AND PREPARATION DETAILS ARE NOT KNOWN
     Route: 065
  5. GLUCOSE 5% IV INFUSION BP [Suspect]
     Active Substance: DEXTROSE
     Dosage: SECOND INFUSION
     Route: 065
     Dates: start: 20151109, end: 20151109
  6. XELODA [Suspect]
     Active Substance: CAPECITABINE
     Indication: ADENOCARCINOMA OF COLON
     Route: 048

REACTIONS (5)
  - Hypokinesia [Recovered/Resolved]
  - Choking [Recovered/Resolved]
  - Bronchospasm [Recovered/Resolved]
  - Anxiety [Recovered/Resolved]
  - Hypoaesthesia [Recovered/Resolved]

NARRATIVE: CASE EVENT DATE: 20151109
